FAERS Safety Report 17611108 (Version 1)
Quarter: 2020Q2

REPORT INFORMATION
  Report Type: Spontaneous
  Country: US (occurrence: US)
  Receive Date: 20200401
  Receipt Date: 20200401
  Transmission Date: 20200713
  Serious: No
  Sender: FDA-Public Use
  Company Number: None

PATIENT
  Age: 48 Year
  Sex: Female
  Weight: 54.36 kg

DRUGS (11)
  1. VITAMIN C [Concomitant]
     Active Substance: ASCORBIC ACID
  2. IBRANCE [Suspect]
     Active Substance: PALBOCICLIB
     Indication: BREAST CANCER
     Dosage: ?          OTHER FREQUENCY:QD FOR 21/28 DAYS;?
     Route: 048
     Dates: start: 20200214
  3. ESTER-C [Concomitant]
  4. ANASTRAZOLE [Concomitant]
     Active Substance: ANASTROZOLE
  5. ALPRAZOLAM. [Concomitant]
     Active Substance: ALPRAZOLAM
  6. BENADRYL [Concomitant]
     Active Substance: DIPHENHYDRAMINE HYDROCHLORIDE
  7. BEANO [Concomitant]
     Active Substance: ASPERGILLUS NIGER .ALPHA.-GALACTOSIDASE
  8. PEPCID AC [Concomitant]
     Active Substance: FAMOTIDINE
  9. MORPHINE SULFATE. [Concomitant]
     Active Substance: MORPHINE SULFATE
  10. ACETAMINOPHEN. [Concomitant]
     Active Substance: ACETAMINOPHEN
  11. MULTIVITAMIN [Concomitant]
     Active Substance: VITAMINS

REACTIONS (1)
  - White blood cell count decreased [None]

NARRATIVE: CASE EVENT DATE: 20200401
